FAERS Safety Report 8211052-5 (Version None)
Quarter: 2012Q1

REPORT INFORMATION
  Report Type: 
  Country: None (occurrence: None)
  Receive Date: 20120315
  Receipt Date: 20120309
  Transmission Date: 20120608
  Serious: No
  Sender: FDA-Public Use
  Company Number: PHHY2011KR109889

PATIENT
  Sex: Female
  Weight: 58 kg

DRUGS (3)
  1. EXJADE [Suspect]
     Indication: IRON OVERLOAD
     Dosage: 500 MG
     Route: 048
     Dates: start: 20110309
  2. EXJADE [Suspect]
     Indication: APLASTIC ANAEMIA
  3. DRUG USED IN DIABETES [Concomitant]
     Indication: DIABETES MELLITUS

REACTIONS (2)
  - SERUM FERRITIN ABNORMAL [None]
  - DECREASED APPETITE [None]
